FAERS Safety Report 12481924 (Version 3)
Quarter: 2016Q3

REPORT INFORMATION
  Report Type: Report from Study
  Country: CA (occurrence: CA)
  Receive Date: 20160620
  Receipt Date: 20160826
  Transmission Date: 20161109
  Serious: Yes (Hospitalization, Other)
  Sender: FDA-Public Use
  Company Number: CA-SA-2016SA072814

PATIENT
  Age: 33 Year
  Sex: Female

DRUGS (13)
  1. LEMTRADA [Suspect]
     Active Substance: ALEMTUZUMAB
     Indication: RELAPSING-REMITTING MULTIPLE SCLEROSIS
     Route: 041
     Dates: start: 20160404, end: 20160408
  2. ACYCLOVIR. [Concomitant]
     Active Substance: ACYCLOVIR
     Indication: PREMEDICATION
     Route: 048
     Dates: start: 20160404
  3. ACETAMINOPHEN. [Concomitant]
     Active Substance: ACETAMINOPHEN
     Indication: PREMEDICATION
     Route: 048
     Dates: start: 20160404
  4. TOPIRAMATE. [Concomitant]
     Active Substance: TOPIRAMATE
     Route: 048
  5. VITAMIN D [Concomitant]
     Active Substance: CHOLECALCIFEROL
     Route: 048
  6. REACTINE [Concomitant]
     Active Substance: CETIRIZINE HYDROCHLORIDE
     Indication: PREMEDICATION
     Route: 048
     Dates: start: 20160404, end: 20160408
  7. CYMBALTA [Concomitant]
     Active Substance: DULOXETINE HYDROCHLORIDE
     Route: 048
  8. METHYLPREDNISOLONE. [Suspect]
     Active Substance: METHYLPREDNISOLONE
     Indication: PREMEDICATION
     Route: 042
     Dates: start: 20160404, end: 20160406
  9. DIPHENHYDRAMINE. [Concomitant]
     Active Substance: DIPHENHYDRAMINE
     Indication: PREMEDICATION
     Dosage: 25-50 MG; IV/PO
     Dates: start: 20160404
  10. OXYBUTIN [Concomitant]
     Active Substance: OXYBUTYNIN
     Route: 048
  11. DIMENHYDRINATE. [Concomitant]
     Active Substance: DIMENHYDRINATE
     Indication: PREMEDICATION
     Dosage: IV/PO
     Dates: start: 20160404
  12. RANITIDINE. [Concomitant]
     Active Substance: RANITIDINE
     Indication: PREMEDICATION
     Route: 048
     Dates: start: 20160404, end: 20160408
  13. GABAPENTIN. [Concomitant]
     Active Substance: GABAPENTIN
     Route: 048

REACTIONS (31)
  - Headache [Recovered/Resolved]
  - Nausea [Recovered/Resolved]
  - Clostridium difficile infection [Unknown]
  - Optic neuritis [Recovered/Resolved]
  - Rash macular [Recovered/Resolved]
  - Injection site swelling [Recovered/Resolved]
  - Diarrhoea [Recovered/Resolved]
  - Vomiting [Recovered/Resolved]
  - Photosensitivity reaction [Recovered/Resolved]
  - Rash pruritic [Recovered/Resolved]
  - Pruritus [Recovered/Resolved]
  - Pyelonephritis [Recovered/Resolved]
  - Injection site pain [Recovered/Resolved]
  - Erythema [Recovered/Resolved]
  - Eye pain [Recovered/Resolved]
  - Feeling hot [Recovering/Resolving]
  - Abdominal pain upper [Recovered/Resolved]
  - Fatigue [Recovered/Resolved]
  - Urticaria [Recovered/Resolved]
  - Rash erythematous [Recovered/Resolved]
  - Dry mouth [Recovering/Resolving]
  - Hypoaesthesia oral [Recovered/Resolved]
  - Urosepsis [Recovered/Resolved]
  - Rash [Recovered/Resolved]
  - Flushing [Recovering/Resolving]
  - Nausea [Recovered/Resolved]
  - Lacrimation increased [Recovered/Resolved]
  - Ear swelling [Recovered/Resolved]
  - Dysgeusia [Recovered/Resolved]
  - Rhinorrhoea [Recovered/Resolved]
  - Pyrexia [Recovered/Resolved]

NARRATIVE: CASE EVENT DATE: 20160404
